FAERS Safety Report 14627866 (Version 2)
Quarter: 2018Q1

REPORT INFORMATION
  Report Type: Spontaneous
  Country: CZ (occurrence: CZ)
  Receive Date: 20180307
  Receipt Date: 20180307
  Transmission Date: 20180509
  Serious: Yes (Other)
  Sender: FDA-Public Use
  Company Number: CZ-CONCORDIA PHARMACEUTICALS INC.-GSH201803-000736

PATIENT
  Age: 64 Year
  Sex: Female

DRUGS (11)
  1. DORETA [Concomitant]
     Active Substance: ACETAMINOPHEN\TRAMADOL HYDROCHLORIDE
  2. SIOFOR [Concomitant]
     Active Substance: METFORMIN HYDROCHLORIDE
  3. CONDROSULF [Concomitant]
     Active Substance: SODIUM CHONDROITIN SULFATE
     Dates: start: 20171108
  4. ATORIS [Concomitant]
     Active Substance: ATORVASTATIN CALCIUM
  5. PLAQUENIL [Suspect]
     Active Substance: HYDROXYCHLOROQUINE SULFATE
     Indication: RHEUMATOID ARTHRITIS
     Route: 048
     Dates: start: 20171108, end: 20171109
  6. EUTHYROX [Concomitant]
     Active Substance: LEVOTHYROXINE SODIUM
  7. ANALERGIN [Concomitant]
  8. ATIMOS [Concomitant]
     Active Substance: FORMOTEROL
  9. MELOXICAM. [Suspect]
     Active Substance: MELOXICAM
     Route: 048
     Dates: start: 20171108, end: 20171109
  10. MODURETIC 5-50 [Concomitant]
     Active Substance: AMILORIDE HYDROCHLORIDE\HYDROCHLOROTHIAZIDE
  11. LATANOPROST. [Concomitant]
     Active Substance: LATANOPROST

REACTIONS (7)
  - Tongue oedema [Unknown]
  - Eye swelling [Unknown]
  - Headache [Unknown]
  - Oedema peripheral [Unknown]
  - Tremor [Unknown]
  - Lip swelling [Unknown]
  - Nausea [Unknown]

NARRATIVE: CASE EVENT DATE: 20171109
